FAERS Safety Report 18742675 (Version 2)
Quarter: 2021Q1

REPORT INFORMATION
  Report Type: Spontaneous
  Country: GR (occurrence: GR)
  Receive Date: 20210114
  Receipt Date: 20210305
  Transmission Date: 20210419
  Serious: Yes (Other)
  Sender: FDA-Public Use
  Company Number: GR-BAUSCH-BL-2021-000213

PATIENT
  Age: 74 Year
  Sex: Female

DRUGS (3)
  1. BRIMONIDINE [Suspect]
     Active Substance: BRIMONIDINE TARTRATE
     Indication: OPEN ANGLE GLAUCOMA
     Route: 065
  2. DORZOLAMIDE/TIMOLOL [Suspect]
     Active Substance: DORZOLAMIDE\TIMOLOL
     Indication: OPEN ANGLE GLAUCOMA
     Route: 065
  3. ARTIFICIAL TEARS [Suspect]
     Active Substance: GLYCERIN\HYPROMELLOSES\POLYETHYLENE GLYCOL 400
     Indication: OPEN ANGLE GLAUCOMA
     Route: 065

REACTIONS (3)
  - Ocular surface disease [Recovering/Resolving]
  - Visual acuity reduced [Recovering/Resolving]
  - Therapy non-responder [Unknown]
